FAERS Safety Report 8126374-6 (Version None)
Quarter: 2012Q1

REPORT INFORMATION
  Report Type: 
  Country: None (occurrence: None)
  Receive Date: 20120209
  Receipt Date: 20120207
  Transmission Date: 20120608
  Serious: Yes (Other)
  Sender: FDA-Public Use
  Company Number: US-MERCK-1202USA01213

PATIENT

DRUGS (1)
  1. FOSAPREPITANT DIMEGLUMINE [Suspect]
     Route: 041

REACTIONS (4)
  - TYPE I HYPERSENSITIVITY [None]
  - URTICARIA [None]
  - OEDEMA PERIPHERAL [None]
  - RASH [None]
